FAERS Safety Report 5366917-9 (Version None)
Quarter: 2007Q2

REPORT INFORMATION
  Report Type: 
  Country: None (occurrence: None)
  Receive Date: 20070622
  Receipt Date: 20070110
  Transmission Date: 20071010
  Serious: No
  Sender: FDA-Public Use
  Company Number: US-ASTRAZENECA-2007UW00563

PATIENT
  Age: 83 Year
  Sex: Female

DRUGS (2)
  1. RHINOCORT [Suspect]
     Indication: SINUSITIS
     Dosage: 1 SPRAY EN QD
     Route: 045
     Dates: start: 20061224
  2. RHINOCORT [Suspect]
     Indication: SINUS HEADACHE
     Dosage: 1 SPRAY EN QD
     Route: 045
     Dates: start: 20061224

REACTIONS (3)
  - DRUG INEFFECTIVE [None]
  - DYSPHONIA [None]
  - HEADACHE [None]
